FAERS Safety Report 6100560-9 (Version None)
Quarter: 2009Q1

REPORT INFORMATION
  Report Type: 
  Country: None (occurrence: None)
  Receive Date: 20090303
  Receipt Date: 20090219
  Transmission Date: 20090719
  Serious: Yes (Hospitalization)
  Sender: FDA-Public Use
  Company Number: US-PFIZER INC-2009173577

PATIENT
  Sex: Female

DRUGS (5)
  1. XANAX [Suspect]
     Dosage: UNK
  2. REBIF [Suspect]
     Indication: MULTIPLE SCLEROSIS
     Dosage: 44 UG, UNK
     Route: 058
     Dates: start: 20081214
  3. REBIF [Suspect]
     Dosage: UNK
     Route: 058
     Dates: start: 20081214
  4. PROZAC [Suspect]
     Dosage: UNK
  5. ALL OTHER THERAPEUTIC PRODUCTS [Concomitant]
     Indication: BLOOD PRESSURE
     Dosage: UNK

REACTIONS (3)
  - CRYING [None]
  - DEPRESSION [None]
  - OVERDOSE [None]
